FAERS Safety Report 8301989-0 (Version None)
Quarter: 2012Q2

REPORT INFORMATION
  Report Type: 
  Country: None (occurrence: None)
  Receive Date: 20120418
  Receipt Date: 20120418
  Transmission Date: 20120825
  Serious: Yes (Hospitalization)
  Sender: FDA-Public Use
  Company Number: None

PATIENT
  Sex: Male
  Weight: 130.1823 kg

DRUGS (5)
  1. QUETIAPINE [Concomitant]
  2. LURASIDONE HYDROCHLORIDE [Suspect]
     Indication: PSYCHOTIC DISORDER
     Dosage: 80MG PO QHS
     Route: 048
     Dates: start: 20120227
  3. CITALOPRAM HYDROBROMIDE [Concomitant]
  4. MIRTAZAPINE [Concomitant]
  5. HYDROXYZINE [Concomitant]

REACTIONS (3)
  - INCORRECT DOSE ADMINISTERED [None]
  - MALAISE [None]
  - VOMITING [None]
